FAERS Safety Report 6267595-7 (Version None)
Quarter: 2009Q3

REPORT INFORMATION
  Report Type: 
  Country: None (occurrence: None)
  Receive Date: 20090714
  Receipt Date: 20090706
  Transmission Date: 20100115
  Serious: Yes (Other)
  Sender: FDA-Public Use
  Company Number: US-JNJCH-2009018396

PATIENT
  Age: 56 Year
  Sex: Male
  Weight: 145.2 kg

DRUGS (2)
  1. VISINE EYE DROPS [Suspect]
     Indication: OCULAR HYPERAEMIA
     Dosage: TEXT:TWO DROPS; 2-3 TIMES UNSPECIFIED
     Route: 047
     Dates: start: 20070101, end: 20070426
  2. DRUG, UNSPECIFIED [Concomitant]
     Indication: BLOOD PRESSURE
     Dosage: TEXT:UNSPECIFIED
     Route: 065

REACTIONS (2)
  - BLINDNESS UNILATERAL [None]
  - THROMBOSIS [None]
